FAERS Safety Report 8387754-7 (Version None)
Quarter: 2012Q2

REPORT INFORMATION
  Report Type: 
  Country: None (occurrence: None)
  Receive Date: 20120525
  Receipt Date: 20120517
  Transmission Date: 20120825
  Serious: Yes (Other)
  Sender: FDA-Public Use
  Company Number: US-VIIV HEALTHCARE LIMITED-A0964895A

PATIENT
  Age: 38 Year
  Sex: Female

DRUGS (4)
  1. METFORMIN HCL [Concomitant]
     Dosage: 100MG TWICE PER DAY
  2. COMBIVIR [Suspect]
     Indication: ANTIRETROVIRAL THERAPY
     Dosage: 2TAB PER DAY
     Route: 048
     Dates: start: 20071011
  3. KALETRA [Suspect]
     Indication: ANTIRETROVIRAL THERAPY
     Dosage: 4TAB PER DAY
     Route: 048
     Dates: start: 20071011
  4. NEXIUM [Concomitant]
     Dosage: 20MG PER DAY

REACTIONS (3)
  - ABDOMINAL INJURY [None]
  - ABORTION SPONTANEOUS [None]
  - MATERNAL EXPOSURE DURING PREGNANCY [None]
